FAERS Safety Report 22293075 (Version 2)
Quarter: 2023Q2

REPORT INFORMATION
  Report Type: Report from Study
  Country: DK (occurrence: None)
  Receive Date: 20230508
  Receipt Date: 20230519
  Transmission Date: 20230722
  Serious: Yes (Hospitalization)
  Sender: FDA-Public Use
  Company Number: DK-ROCHE-3292546

PATIENT
  Age: 81 Year
  Sex: Male
  Weight: 82.2 kg

DRUGS (27)
  1. GLOFITAMAB [Suspect]
     Active Substance: GLOFITAMAB
     Indication: Follicular lymphoma
     Dosage: DATE OF MOST RECENT DOSE OF STUDY DRUG PRIOR TO SAE: 22/FEB/2023?ON 24/APR/2023 AT 1:49 PM, HE RECEI
     Route: 042
     Dates: start: 20230222
  2. OBINUTUZUMAB [Suspect]
     Active Substance: OBINUTUZUMAB
     Indication: Follicular lymphoma
     Dosage: DATE OF MOST RECENT DOSE OF STUDY DRUG PRIOR TO SAE: 15/FEB/2023 (418.5 ML)
     Route: 042
     Dates: start: 20230215
  3. POLATUZUMAB VEDOTIN [Suspect]
     Active Substance: POLATUZUMAB VEDOTIN
     Indication: Follicular lymphoma
     Dosage: DATE OF MOST RECENT DOSE OF STUDY DRUG PRIOR TO SAE: 17/FEB/2023, 24-APR-2023 (119 ML)
     Route: 042
     Dates: start: 20230217
  4. TOCILIZUMAB [Suspect]
     Active Substance: TOCILIZUMAB
     Indication: Cytokine release syndrome
     Dosage: MOST RECENT DOSE OF TOCILIZUMAB RECEIVED ON 22/FEB/2023 FROM 8.15PM TO 9.15PM (100 ML)
     Route: 042
     Dates: start: 20230222
  5. DEXAMETHASONE [Concomitant]
     Active Substance: DEXAMETHASONE
     Dosage: YES
     Route: 042
     Dates: start: 20230222, end: 20230222
  6. DEXAMETHASONE [Concomitant]
     Active Substance: DEXAMETHASONE
     Route: 042
     Dates: start: 20230222, end: 20230222
  7. DEXAMETHASONE [Concomitant]
     Active Substance: DEXAMETHASONE
     Route: 042
     Dates: start: 20230215, end: 20230215
  8. ACETAMINOPHEN [Concomitant]
     Active Substance: ACETAMINOPHEN
     Indication: Arthralgia
     Route: 048
     Dates: start: 20230217, end: 20230217
  9. ACETAMINOPHEN [Concomitant]
     Active Substance: ACETAMINOPHEN
     Route: 048
     Dates: start: 20230222, end: 20230222
  10. ACETAMINOPHEN [Concomitant]
     Active Substance: ACETAMINOPHEN
     Dates: start: 20220723
  11. CLEMASTINE [Concomitant]
     Active Substance: CLEMASTINE
     Route: 042
     Dates: start: 20230215, end: 20230215
  12. CETIRIZINE [Concomitant]
     Active Substance: CETIRIZINE HYDROCHLORIDE
     Route: 048
     Dates: start: 20230222, end: 20230222
  13. CETIRIZINE [Concomitant]
     Active Substance: CETIRIZINE HYDROCHLORIDE
     Route: 048
     Dates: start: 20230217, end: 20230217
  14. MONTELUKAST [Concomitant]
     Active Substance: MONTELUKAST SODIUM
     Route: 048
     Dates: start: 20230215, end: 20230215
  15. PANTOPRAZOLE [Concomitant]
     Active Substance: PANTOPRAZOLE
     Indication: Dyspepsia
     Dates: start: 20200421
  16. PANTOPRAZOLE [Concomitant]
     Active Substance: PANTOPRAZOLE
     Dates: start: 20230424
  17. POTASSIUM CHLORIDE [Concomitant]
     Active Substance: POTASSIUM CHLORIDE
     Dates: start: 20190403
  18. RIVAROXABAN [Concomitant]
     Active Substance: RIVAROXABAN
     Dates: start: 20201123
  19. VITAMIN B12 [Concomitant]
     Active Substance: CYANOCOBALAMIN
     Indication: Vitamin B12 deficiency
     Dates: start: 20200115
  20. ZOLPIDEM [Concomitant]
     Active Substance: ZOLPIDEM TARTRATE
     Indication: Insomnia
     Dates: start: 20180209
  21. ALLOPURINOL [Concomitant]
     Active Substance: ALLOPURINOL
     Indication: Prophylaxis
     Dates: start: 20230217, end: 20230217
  22. ALLOPURINOL [Concomitant]
     Active Substance: ALLOPURINOL
     Dates: start: 20230222, end: 20230222
  23. ACYCLOVIR [Concomitant]
     Active Substance: ACYCLOVIR
     Indication: Prophylaxis
     Dates: start: 20230217
  24. SULFAMETHOXAZOLE\TRIMETHOPRIM [Concomitant]
     Active Substance: SULFAMETHOXAZOLE\TRIMETHOPRIM
     Indication: Prophylaxis
     Dates: start: 20230217
  25. PEGFILGRASTIM [Concomitant]
     Active Substance: PEGFILGRASTIM
     Indication: Prophylaxis
     Dates: start: 20230218, end: 20230218
  26. FILGRASTIM [Concomitant]
     Active Substance: FILGRASTIM
     Indication: Neutropenia
     Dates: start: 20230330, end: 20230402
  27. METOCLOPRAMIDE [Concomitant]
     Active Substance: METOCLOPRAMIDE
     Indication: Nausea
     Dates: start: 20230411, end: 20230424

REACTIONS (2)
  - Cytokine release syndrome [Recovered/Resolved]
  - Pyrexia [Recovered/Resolved]

NARRATIVE: CASE EVENT DATE: 20230222
